FAERS Safety Report 9033480 (Version 1)
Quarter: 2013Q1

REPORT INFORMATION
  Report Type: Spontaneous
  Country: US (occurrence: US)
  Receive Date: 20130128
  Receipt Date: 20130128
  Transmission Date: 20140127
  Serious: Yes (Other)
  Sender: FDA-Public Use
  Company Number: US-AMGEN-USASP2011031646

PATIENT
  Age: 73 Year
  Sex: Female

DRUGS (6)
  1. ARANESP [Suspect]
     Indication: RENAL FAILURE CHRONIC
     Dosage: 200 ?G, UNK
  2. ARANESP [Suspect]
     Indication: ANAEMIA
  3. NEUPOGEN [Suspect]
     Indication: CHEMOTHERAPY
     Dates: start: 2002
  4. NEULASTA [Suspect]
     Indication: CHEMOTHERAPY
     Dates: start: 2002
  5. COUMADIN                           /00014802/ [Concomitant]
  6. ANTINEOPLASTIC AGENTS [Concomitant]

REACTIONS (3)
  - International normalised ratio abnormal [Not Recovered/Not Resolved]
  - Drug interaction [Not Recovered/Not Resolved]
  - Renal failure [Not Recovered/Not Resolved]
